FAERS Safety Report 19520619 (Version 8)
Quarter: 2022Q3

REPORT INFORMATION
  Report Type: Other
  Country: KR (occurrence: None)
  Receive Date: 20210712
  Receipt Date: 20220915
  Transmission Date: 20221027
  Serious: Yes (Hospitalization, Other)
  Sender: FDA-Public Use
  Company Number: KR-ROCHE-2862347

PATIENT
  Age: 74 Year
  Sex: Male
  Weight: 59 kg

DRUGS (68)
  1. ATEZOLIZUMAB [Suspect]
     Active Substance: ATEZOLIZUMAB
     Indication: Small cell lung cancer extensive stage
     Dosage: MOST RECENT DOSE ADMINISTERED ON 10/FEB/2021, 09/AUG/2021, 1200 MG.
     Route: 041
     Dates: start: 20201209
  2. ATEZOLIZUMAB [Suspect]
     Active Substance: ATEZOLIZUMAB
     Route: 041
     Dates: start: 20210210
  3. ATEZOLIZUMAB [Suspect]
     Active Substance: ATEZOLIZUMAB
     Route: 041
     Dates: start: 20210319
  4. ATEZOLIZUMAB [Suspect]
     Active Substance: ATEZOLIZUMAB
     Route: 041
     Dates: start: 20210414
  5. ATEZOLIZUMAB [Suspect]
     Active Substance: ATEZOLIZUMAB
     Route: 041
     Dates: start: 20210518
  6. ATEZOLIZUMAB [Suspect]
     Active Substance: ATEZOLIZUMAB
     Route: 041
     Dates: start: 20210624
  7. ATEZOLIZUMAB [Suspect]
     Active Substance: ATEZOLIZUMAB
     Route: 041
     Dates: start: 20210809
  8. CARBOPLATIN [Suspect]
     Active Substance: CARBOPLATIN
     Indication: Small cell lung cancer extensive stage
     Route: 042
     Dates: start: 20201209
  9. CARBOPLATIN [Suspect]
     Active Substance: CARBOPLATIN
     Route: 042
     Dates: start: 20210210
  10. CARBOPLATIN [Suspect]
     Active Substance: CARBOPLATIN
     Route: 042
     Dates: start: 20210319
  11. CARBOPLATIN [Suspect]
     Active Substance: CARBOPLATIN
     Route: 042
     Dates: start: 20210414
  12. ETOPOSIDE [Suspect]
     Active Substance: ETOPOSIDE
     Indication: Small cell lung cancer extensive stage
     Dosage: 158 MG/M2?MOST RECENT DOSE ADMINISTERED ON 10/DEC/2020, 11/DEC/2020, 11/FEB/2021, 12/FEB/2021 (145 M
     Route: 042
     Dates: start: 20201209
  13. ETOPOSIDE [Suspect]
     Active Substance: ETOPOSIDE
     Route: 042
     Dates: start: 20210210
  14. ETOPOSIDE [Suspect]
     Active Substance: ETOPOSIDE
     Route: 042
     Dates: start: 20210319
  15. ETOPOSIDE [Suspect]
     Active Substance: ETOPOSIDE
     Route: 042
     Dates: start: 20210414
  16. ETOPOSIDE [Suspect]
     Active Substance: ETOPOSIDE
     Route: 042
     Dates: start: 20201210
  17. ETOPOSIDE [Suspect]
     Active Substance: ETOPOSIDE
     Route: 042
     Dates: start: 20201211
  18. ETOPOSIDE [Suspect]
     Active Substance: ETOPOSIDE
     Route: 042
     Dates: start: 20210211
  19. ETOPOSIDE [Suspect]
     Active Substance: ETOPOSIDE
     Route: 042
     Dates: start: 20210212
  20. ETOPOSIDE [Suspect]
     Active Substance: ETOPOSIDE
     Route: 042
     Dates: start: 20210320
  21. ETOPOSIDE [Suspect]
     Active Substance: ETOPOSIDE
     Route: 042
     Dates: start: 20210321
  22. ETOPOSIDE [Suspect]
     Active Substance: ETOPOSIDE
     Route: 042
     Dates: start: 20210415
  23. ETOPOSIDE [Suspect]
     Active Substance: ETOPOSIDE
     Route: 042
     Dates: start: 20210416
  24. DULACKHAN EASY [Concomitant]
     Dates: start: 20201223
  25. RABEPRAZOLE SODIUM [Concomitant]
     Active Substance: RABEPRAZOLE SODIUM
     Dates: start: 20201208, end: 20201211
  26. MAGNESIUM HYDROXIDE [Concomitant]
     Active Substance: MAGNESIUM HYDROXIDE
     Indication: Constipation
     Dates: start: 20201208, end: 20201211
  27. ETIZOLAM [Concomitant]
     Active Substance: ETIZOLAM
     Dates: start: 20201118
  28. ADMIN PLUS [Concomitant]
     Dates: start: 20201120, end: 20201211
  29. QUETIAPINE FUMARATE [Concomitant]
     Active Substance: QUETIAPINE FUMARATE
     Dates: start: 20201208
  30. LUNAPAM [Concomitant]
     Dates: start: 20201118
  31. LENOGRASTIM [Concomitant]
     Active Substance: LENOGRASTIM
     Dates: start: 20201217
  32. LANSOPRAZOLE [Concomitant]
     Active Substance: LANSOPRAZOLE
     Dates: start: 20200325
  33. RUPAFIN [Concomitant]
     Active Substance: RUPATADINE FUMARATE
     Dates: start: 20201217
  34. NEXILEN S [Concomitant]
     Dates: start: 20201217
  35. LYRICA [Concomitant]
     Active Substance: PREGABALIN
     Dates: start: 20201217
  36. LYRICA [Concomitant]
     Active Substance: PREGABALIN
     Dates: start: 20210222
  37. THEOBROMINE [Concomitant]
     Active Substance: THEOBROMINE
     Dates: start: 20201217
  38. TARGIN PR [Concomitant]
     Dates: start: 20201217
  39. ULTRACET ER SEMI [Concomitant]
     Dates: start: 20201217
  40. BUPRENORPHINE [Concomitant]
     Active Substance: BUPRENORPHINE
     Dates: start: 20201217, end: 20210501
  41. MAXIPIME [Concomitant]
     Active Substance: CEFEPIME HYDROCHLORIDE
     Dates: start: 20201222, end: 20201229
  42. MAXIPIME [Concomitant]
     Active Substance: CEFEPIME HYDROCHLORIDE
     Dates: start: 20210720, end: 20210801
  43. ITOMED [ITOPRIDE HYDROCHLORIDE] [Concomitant]
     Dates: start: 20201223, end: 20210115
  44. VENTOLIN [Concomitant]
     Active Substance: ALBUTEROL SULFATE
     Dates: start: 20201223
  45. IPRATROPIUM BROMIDE [Concomitant]
     Active Substance: IPRATROPIUM BROMIDE
     Dates: start: 20201223
  46. PULMICORT RESPULES [Concomitant]
     Active Substance: BUDESONIDE
     Dates: start: 20201223, end: 20201227
  47. ACETYLCYSTEINE [Concomitant]
     Active Substance: ACETYLCYSTEINE
     Dosage: RECENT DOSE ON 16/JUL/2021
     Dates: start: 20201223, end: 20201227
  48. HANOMYCIN [Concomitant]
     Dates: start: 20201223
  49. TEICOCIN [Concomitant]
  50. AUGMENTIN [Concomitant]
     Active Substance: AMOXICILLIN\CLAVULANATE POTASSIUM
  51. MAGNESIUM HYDROXIDE [Concomitant]
     Active Substance: MAGNESIUM HYDROXIDE
     Dates: start: 20201208, end: 20210719
  52. ZALETON [Concomitant]
     Dates: start: 20210123, end: 20210123
  53. FLASINYL [Concomitant]
  54. PROPACETAMOL HYDROCHLORIDE [Concomitant]
     Active Substance: PROPACETAMOL HYDROCHLORIDE
     Indication: Enterocolitis
     Route: 042
     Dates: start: 20210131, end: 20210131
  55. PROPACETAMOL HYDROCHLORIDE [Concomitant]
     Active Substance: PROPACETAMOL HYDROCHLORIDE
     Indication: Proctitis
     Route: 042
     Dates: start: 20210428, end: 20210428
  56. PREDNISOLONE [Concomitant]
     Active Substance: PREDNISOLONE
  57. DOXOFYLLINE [Concomitant]
     Active Substance: DOXOFYLLINE
     Dates: start: 20210427
  58. AZEPTIN [AZELASTINE HYDROCHLORIDE] [Concomitant]
  59. DUOLAX [BISACODYL;DOCUSATE SODIUM] [Concomitant]
  60. PRAKANON [Concomitant]
  61. ZITHROMAX [Concomitant]
     Active Substance: AZITHROMYCIN DIHYDRATE
     Dates: start: 20210716
  62. ELIQUIS [Concomitant]
     Active Substance: APIXABAN
  63. HINECHOL [Concomitant]
     Indication: Dysuria
     Route: 048
     Dates: start: 20210109
  64. HARNAL [Concomitant]
     Active Substance: TAMSULOSIN HYDROCHLORIDE
     Indication: Dysuria
     Route: 048
     Dates: start: 20201231
  65. LEVOPLUS [LEVOFLOXACIN] [Concomitant]
     Indication: Pneumonia
     Route: 048
     Dates: start: 20210720, end: 20210802
  66. SALON [Concomitant]
     Route: 042
     Dates: start: 20210720, end: 20210725
  67. CEFTRIAXONE [Concomitant]
     Active Substance: CEFTRIAXONE
     Indication: Pneumonia
     Route: 042
     Dates: start: 20210716, end: 20210720
  68. KCL [Concomitant]
     Active Substance: POTASSIUM CHLORIDE
     Indication: Diarrhoea
     Route: 042
     Dates: start: 20210125, end: 20210414

REACTIONS (11)
  - Febrile neutropenia [Recovered/Resolved]
  - Proctitis [Recovered/Resolved]
  - Enterococcal infection [Recovered/Resolved]
  - Enterocolitis [Recovered/Resolved]
  - Pneumonia [Recovered/Resolved]
  - Pneumonia aspiration [Recovered/Resolved]
  - Paraesthesia [Recovered/Resolved]
  - Dysuria [Recovering/Resolving]
  - Constipation [Recovering/Resolving]
  - Diarrhoea [Recovered/Resolved]
  - Rash [Recovering/Resolving]

NARRATIVE: CASE EVENT DATE: 20201217
